FAERS Safety Report 7064705-9 (Version None)
Quarter: 2010Q4

REPORT INFORMATION
  Report Type: 
  Country: None (occurrence: None)
  Receive Date: 20101027
  Receipt Date: 20001218
  Transmission Date: 20110411
  Serious: Yes (Hospitalization, Congenital Anomaly)
  Sender: FDA-Public Use
  Company Number: FR-ROCHE-251121

PATIENT
  Sex: Female
  Weight: 3.2 kg

DRUGS (4)
  1. VALIUM [Suspect]
     Indication: PRODUCT USED FOR UNKNOWN INDICATION
     Dates: start: 20000129, end: 20001028
  2. LEXOMIL [Suspect]
     Indication: PRODUCT USED FOR UNKNOWN INDICATION
     Dates: start: 20000129, end: 20001028
  3. DEPAKENE [Suspect]
     Indication: PRODUCT USED FOR UNKNOWN INDICATION
     Dates: start: 20000129, end: 20001028
  4. HEPT-A-MYL [Suspect]
     Indication: PRODUCT USED FOR UNKNOWN INDICATION
     Dates: start: 20000129, end: 20001028

REACTIONS (4)
  - ANOMALY OF EXTERNAL EAR CONGENITAL [None]
  - APNOEA [None]
  - BENIGN CONGENITAL HYPOTONIA [None]
  - FEEDING DISORDER NEONATAL [None]
